FAERS Safety Report 25164809 (Version 2)
Quarter: 2025Q2

REPORT INFORMATION
  Report Type: Spontaneous
  Country: US (occurrence: US)
  Receive Date: 20250406
  Receipt Date: 20250613
  Transmission Date: 20250716
  Serious: No
  Sender: SANOFI AVENTIS
  Company Number: US-SA-2025SA097382

PATIENT
  Age: 57 Year
  Sex: Female
  Weight: 95 kg

DRUGS (12)
  1. KEVZARA [Suspect]
     Active Substance: SARILUMAB
     Indication: Rheumatoid arthritis
     Dosage: 200 MG, QOW
     Route: 058
     Dates: start: 20250323
  2. BOTOX [Concomitant]
     Active Substance: ONABOTULINUMTOXINA
  3. XTAMPZA ER [Concomitant]
     Active Substance: OXYCODONE
  4. METAXALONE [Concomitant]
     Active Substance: METAXALONE
  5. LYRICA [Concomitant]
     Active Substance: PREGABALIN
  6. RISPERIDONE [Concomitant]
     Active Substance: RISPERIDONE
  7. UBRELVY [Concomitant]
     Active Substance: UBROGEPANT
  8. TRAZODONE HCL [Concomitant]
     Active Substance: TRAZODONE HYDROCHLORIDE
  9. HYDROCHLOROTHIAZIDE [Concomitant]
     Active Substance: HYDROCHLOROTHIAZIDE
  10. CLONAZEPAM [Concomitant]
     Active Substance: CLONAZEPAM
  11. METFORMIN HYDROCHLORIDE [Concomitant]
     Active Substance: METFORMIN HYDROCHLORIDE
  12. TALTZ [Concomitant]
     Active Substance: IXEKIZUMAB

REACTIONS (4)
  - Pain [Unknown]
  - Injection site mass [Recovering/Resolving]
  - Injection site pruritus [Recovering/Resolving]
  - Injection site erythema [Recovering/Resolving]

NARRATIVE: CASE EVENT DATE: 20250101
